FAERS Safety Report 7749976-5 (Version None)
Quarter: 2011Q3

REPORT INFORMATION
  Report Type: 
  Country: None (occurrence: None)
  Receive Date: 20110912
  Receipt Date: 20110830
  Transmission Date: 20111222
  Serious: Yes (Hospitalization)
  Sender: FDA-Public Use
  Company Number: B0743153A

PATIENT
  Age: 49 Year
  Sex: Male

DRUGS (6)
  1. DIGOXIN [Concomitant]
  2. BUDESONIDE [Concomitant]
  3. ATORVASTATIN CALCIUM [Concomitant]
  4. SALMETEROL XINAFOATE [Concomitant]
  5. ALBUTEROL SULFATE [Suspect]
     Indication: ASTHMA
     Dosage: INHALED
     Route: 055
  6. ASPIRIN [Concomitant]

REACTIONS (4)
  - DYSPNOEA [None]
  - COUGH [None]
  - WHEEZING [None]
  - LACTIC ACIDOSIS [None]
